FAERS Safety Report 7932359-2 (Version None)
Quarter: 2011Q4

REPORT INFORMATION
  Report Type: 
  Country: None (occurrence: None)
  Receive Date: 20111121
  Receipt Date: 20111111
  Transmission Date: 20120403
  Serious: Yes (Hospitalization)
  Sender: FDA-Public Use
  Company Number: CA-BRISTOL-MYERS SQUIBB COMPANY-16229387

PATIENT
  Age: 8 Decade
  Sex: Female

DRUGS (1)
  1. ONGLYZA [Suspect]
     Route: 048

REACTIONS (1)
  - PANCREATITIS [None]
